FAERS Safety Report 5949738-5 (Version None)
Quarter: 2008Q4

REPORT INFORMATION
  Report Type: 
  Country: None (occurrence: None)
  Receive Date: 20081112
  Receipt Date: 20081002
  Transmission Date: 20090506
  Serious: No
  Sender: FDA-Public Use
  Company Number: US-BAYER-200834914NA

PATIENT
  Age: 60 Year
  Sex: Male

DRUGS (1)
  1. MAGNEVIST [Suspect]
     Indication: NUCLEAR MAGNETIC RESONANCE IMAGING BRAIN
     Dosage: TOTAL DAILY DOSE: 20 ML
     Route: 042
     Dates: start: 20081001, end: 20081001

REACTIONS (2)
  - NAUSEA [None]
  - VOMITING [None]
